FAERS Safety Report 23400714 (Version 1)
Quarter: 2024Q1

REPORT INFORMATION
  Report Type: Other
  Country: CN (occurrence: None)
  Receive Date: 20240115
  Receipt Date: 20240115
  Transmission Date: 20240410
  Serious: Yes (Other)
  Sender: FDA-Public Use
  Company Number: CN-ROCHE-3488708

PATIENT
  Age: 67 Year
  Sex: Female

DRUGS (7)
  1. ATEZOLIZUMAB [Suspect]
     Active Substance: ATEZOLIZUMAB
     Indication: Small cell lung cancer extensive stage
     Dosage: 10 CYCLES
     Route: 042
     Dates: start: 202105, end: 202207
  2. ATEZOLIZUMAB [Suspect]
     Active Substance: ATEZOLIZUMAB
     Indication: Metastases to bone
  3. ETOPOSIDE [Concomitant]
     Active Substance: ETOPOSIDE
     Indication: Small cell lung cancer extensive stage
     Dosage: 6 CYCLES
     Dates: end: 2021
  4. ETOPOSIDE [Concomitant]
     Active Substance: ETOPOSIDE
     Indication: Metastases to bone
  5. CISPLATIN [Concomitant]
     Active Substance: CISPLATIN
     Indication: Small cell lung cancer extensive stage
     Dosage: 6 CYCLES
     Dates: end: 2021
  6. CISPLATIN [Concomitant]
     Active Substance: CISPLATIN
     Indication: Metastases to bone
  7. ALPROSTADIL [Concomitant]
     Active Substance: ALPROSTADIL
     Route: 042
     Dates: start: 2022

REACTIONS (2)
  - Optic perineuritis [Recovered/Resolved]
  - Optic neuritis [Recovered/Resolved]

NARRATIVE: CASE EVENT DATE: 20220101
